FAERS Safety Report 9611249 (Version 2)
Quarter: 2013Q4

REPORT INFORMATION
  Report Type: Spontaneous
  Country: US (occurrence: US)
  Receive Date: 20131010
  Receipt Date: 20131018
  Transmission Date: 20140711
  Serious: Yes (Other)
  Sender: FDA-Public Use
  Company Number: US-AMGEN-USASP2013070598

PATIENT
  Age: 47 Year
  Sex: Female
  Weight: 56.69 kg

DRUGS (9)
  1. ENBREL [Suspect]
     Indication: PRODUCT USED FOR UNKNOWN INDICATION
     Dosage: 50 MG, QWK
     Route: 058
  2. FLUOXETINE [Concomitant]
     Dosage: 20 MG, UNK
  3. FOLIC ACID [Concomitant]
     Dosage: UNK
  4. MAXALT [Concomitant]
     Dosage: 5 MG, UNK
  5. METHOTREXATE [Concomitant]
     Dosage: 2.5 MG, UNK
  6. CELEBREX [Concomitant]
     Dosage: 100 MG, UNK
  7. NORCO [Concomitant]
     Dosage: UNK, 5-325MG
  8. RITALINA LA [Concomitant]
     Dosage: 10 MG, UNK
  9. FIORICET [Concomitant]
     Dosage: UNK

REACTIONS (2)
  - Sinus disorder [Unknown]
  - Sinusitis [Recovered/Resolved]
